FAERS Safety Report 20202814 (Version 1)
Quarter: 2021Q4

REPORT INFORMATION
  Report Type: Spontaneous
  Country: US (occurrence: US)
  Receive Date: 20211218
  Receipt Date: 20211218
  Transmission Date: 20220303
  Serious: No
  Sender: FDA-Public Use
  Company Number: US-SA-SAC20211210000571

PATIENT
  Age: 50 Year
  Sex: Male

DRUGS (5)
  1. DUPIXENT [Suspect]
     Active Substance: DUPILUMAB
     Indication: Dermatitis atopic
     Dosage: 300 MG, QOW
     Route: 058
     Dates: start: 202010
  2. ARMODAFINIL [Concomitant]
     Active Substance: ARMODAFINIL
  3. TAMSULOSIN [Concomitant]
     Active Substance: TAMSULOSIN
  4. SULFAMETHOXAZOLE AND TRIMETHOPRIM [Concomitant]
     Active Substance: SULFAMETHOXAZOLE\TRIMETHOPRIM
     Dosage: UNK
  5. MUPIROCIN [Concomitant]
     Active Substance: MUPIROCIN
     Dosage: UNK

REACTIONS (7)
  - Pruritus [Unknown]
  - Miliaria [Unknown]
  - Rash [Recovered/Resolved]
  - Rash erythematous [Unknown]
  - Scratch [Unknown]
  - Wound [Unknown]
  - Therapeutic response shortened [Unknown]
